FAERS Safety Report 12510567 (Version 1)
Quarter: 2016Q2

REPORT INFORMATION
  Report Type: Spontaneous
  Country: US (occurrence: US)
  Receive Date: 20160629
  Receipt Date: 20160629
  Transmission Date: 20160815
  Serious: No
  Sender: FDA-Public Use
  Company Number: US-RECKITT BENCKISER HEALTHCARE INT LIMITED-RB-81274-2016

PATIENT
  Age: 53 Year
  Sex: Female

DRUGS (1)
  1. MUCINEX [Suspect]
     Active Substance: GUAIFENESIN
     Indication: PNEUMONIA
     Dosage: 1 DF, BID
     Route: 065
     Dates: start: 20151231

REACTIONS (2)
  - Product use issue [Unknown]
  - No adverse event [Unknown]
